FAERS Safety Report 5292287-0 (Version None)
Quarter: 2007Q2

REPORT INFORMATION
  Report Type: 
  Country: None (occurrence: None)
  Receive Date: 20070403
  Receipt Date: 20070329
  Transmission Date: 20071010
  Serious: Yes (Hospitalization)
  Sender: FDA-Public Use
  Company Number: THQ2007A00246

PATIENT
  Age: 64 Year
  Sex: Female

DRUGS (6)
  1. ACTOS [Suspect]
     Indication: DIABETES MELLITUS
     Dates: start: 20030101
  2. ARZOXIFENE (CODE NOT BROKEN) (ARZOXIFENE) [Suspect]
     Dosage: (20 MG) PER ORAL
     Route: 048
  3. GLIBENCLAMIDE [Concomitant]
  4. METFORMIN HCL [Concomitant]
  5. ATENOLOL [Concomitant]
  6. CALCIUM CARBONATE/COLECALCIFEROL (COLECALCIFEROL, CALCIUM CARBONATE) [Concomitant]

REACTIONS (6)
  - FALL [None]
  - GAIT DISTURBANCE [None]
  - HUMERUS FRACTURE [None]
  - MUSCULOSKELETAL PAIN [None]
  - PAIN IN EXTREMITY [None]
  - PUBIC RAMI FRACTURE [None]
